FAERS Safety Report 5960050-0 (Version None)
Quarter: 2008Q4

REPORT INFORMATION
  Report Type: 
  Country: None (occurrence: None)
  Receive Date: 20081119
  Receipt Date: 20081119
  Transmission Date: 20090506
  Serious: Yes (Life-Threatening)
  Sender: FDA-Public Use
  Company Number: None

PATIENT
  Age: 58 Year
  Sex: Female
  Weight: 78 kg

DRUGS (18)
  1. HEPARIN [Suspect]
     Indication: DEEP VEIN THROMBOSIS
     Dosage: VAR, IV INF
     Route: 042
     Dates: start: 20080903, end: 20080906
  2. HEPARIN [Suspect]
     Indication: PULMONARY EMBOLISM
     Dosage: VAR, IV INF
     Route: 042
     Dates: start: 20080903, end: 20080906
  3. VALSARTAN [Concomitant]
  4. FERROUS SULFATE [Concomitant]
  5. FUROSEMIDE [Concomitant]
  6. MGO [Concomitant]
  7. PREDNISONE TAB [Concomitant]
  8. LANSOPRAZOLE [Concomitant]
  9. METOPROLOL TARTRATE [Concomitant]
  10. ALPRAZOLAM [Concomitant]
  11. AMLODIPINE [Concomitant]
  12. RANITIDINE [Concomitant]
  13. ATORVASTATIN CALCIUM [Concomitant]
  14. CACO3 [Concomitant]
  15. SIROLIMUS [Concomitant]
  16. TACROLIMUS [Concomitant]
  17. PAROXETINE HCL [Concomitant]
  18. WARF [Concomitant]

REACTIONS (5)
  - ACTIVATED PARTIAL THROMBOPLASTIN TIME PROLONGED [None]
  - INTERNATIONAL NORMALISED RATIO DECREASED [None]
  - MUSCLE HAEMORRHAGE [None]
  - MUSCULAR WEAKNESS [None]
  - PAIN IN EXTREMITY [None]
